FAERS Safety Report 6178979-X (Version None)
Quarter: 2009Q2

REPORT INFORMATION
  Report Type: 
  Country: None (occurrence: None)
  Receive Date: 20090505
  Receipt Date: 20090427
  Transmission Date: 20091009
  Serious: Yes (Life-Threatening, Hospitalization, Disabling)
  Sender: FDA-Public Use
  Company Number: DE-BRISTOL-MYERS SQUIBB COMPANY-14598957

PATIENT
  Age: 64 Year
  Sex: Male

DRUGS (5)
  1. MITOMYCIN [Suspect]
     Indication: BLADDER CANCER
     Dosage: TOTAL OF 10-12 ADMINISTRATIONS; ROUTE-IB;
     Dates: start: 20071201, end: 20080417
  2. LEVOTHYROXINE SODIUM [Concomitant]
     Dosage: L-THYROXINE 50
     Route: 048
     Dates: start: 20090122
  3. AZATHIOPRINE [Concomitant]
     Dosage: AZATHIOPRIN 50
     Route: 048
     Dates: start: 20090122
  4. PREDNISOLONE [Concomitant]
     Dosage: PREDNISOLON 40
     Route: 048
     Dates: start: 20090122
  5. OMEPRAZOL [Concomitant]
     Route: 048
     Dates: start: 20090122

REACTIONS (2)
  - CHEMICAL CYSTITIS [None]
  - PULMONARY FIBROSIS [None]
